FAERS Safety Report 13111154 (Version 1)
Quarter: 2017Q1

REPORT INFORMATION
  Report Type: Spontaneous
  Country: US (occurrence: US)
  Receive Date: 20170112
  Receipt Date: 20170112
  Transmission Date: 20170428
  Serious: No
  Sender: FDA-Public Use
  Company Number: US-VIIV HEALTHCARE LIMITED-US2017GSK003417

PATIENT
  Age: 20 Year
  Sex: Female

DRUGS (1)
  1. TIVICAY [Suspect]
     Active Substance: DOLUTEGRAVIR SODIUM
     Indication: HIV INFECTION
     Dosage: DOSE/STRENGTH 50 MG

REACTIONS (1)
  - Emergency care examination [Not Recovered/Not Resolved]

NARRATIVE: CASE EVENT DATE: 201701
